FAERS Safety Report 5514730-1 (Version None)
Quarter: 2007Q4

REPORT INFORMATION
  Report Type: 
  Country: None (occurrence: None)
  Receive Date: 20071113
  Receipt Date: 20071102
  Transmission Date: 20080405
  Serious: Yes (Other)
  Sender: FDA-Public Use
  Company Number: HQWYE693504MAY04

PATIENT
  Sex: Female

DRUGS (5)
  1. PREMPRO [Suspect]
     Indication: HORMONE REPLACEMENT THERAPY
     Dosage: UNSPECIFIED
     Route: 048
  2. ESTRADERM [Suspect]
  3. ESTRACE [Suspect]
  4. CONJUGATED ESTROGENS [Suspect]
  5. PROVERA [Suspect]

REACTIONS (1)
  - TRANSIENT ISCHAEMIC ATTACK [None]
